FAERS Safety Report 15012613 (Version 1)
Quarter: 2018Q2

REPORT INFORMATION
  Report Type: Spontaneous
  Country: ES (occurrence: ES)
  Receive Date: 20180614
  Receipt Date: 20180614
  Transmission Date: 20180711
  Serious: Yes (Hospitalization)
  Sender: FDA-Public Use
  Company Number: ES-MYLANLABS-2018M1043058

PATIENT
  Age: 74 Year
  Sex: Male

DRUGS (4)
  1. OMEPRAZOLE. [Suspect]
     Active Substance: OMEPRAZOLE
     Indication: ORCHITIS
     Dosage: 20 MG, QD
     Route: 048
     Dates: start: 20180216, end: 20180222
  2. ENANTYUM [Suspect]
     Active Substance: DEXKETOPROFEN TROMETAMOL
     Indication: ORCHITIS
     Dosage: 25 MG, BID
     Route: 048
     Dates: start: 20180216, end: 20180222
  3. TOBRAMICINA                        /00304201/ [Suspect]
     Active Substance: TOBRAMYCIN
     Indication: ORCHITIS
     Dosage: 200 MG, QD
     Route: 030
     Dates: start: 20180216, end: 20180220
  4. CEFIXIMA [Suspect]
     Active Substance: CEFIXIME
     Indication: ORCHITIS
     Dosage: 400 MG/12 H DURANTE 7 DIAS Y LUEGO 400 MGR CADA 24 HORAS 7 DIAS M?S
     Route: 048

REACTIONS (3)
  - Pain [Unknown]
  - Erythema multiforme [Unknown]
  - Pruritus [Unknown]

NARRATIVE: CASE EVENT DATE: 20180301
